FAERS Safety Report 6114087-1 (Version None)
Quarter: 2009Q1

REPORT INFORMATION
  Report Type: 
  Country: None (occurrence: None)
  Receive Date: 20090312
  Receipt Date: 19991228
  Transmission Date: 20090719
  Serious: No
  Sender: FDA-Public Use
  Company Number: US-ABBOTT-08P-163-0455577-00

PATIENT
  Sex: Male

DRUGS (1)
  1. DEPAKOTE [Suspect]
     Indication: CONVULSION
     Route: 048

REACTIONS (5)
  - ANOREXIA [None]
  - CONVULSION [None]
  - DRUG LEVEL DECREASED [None]
  - FREQUENT BOWEL MOVEMENTS [None]
  - WEIGHT DECREASED [None]
